FAERS Safety Report 6372779-3 (Version None)
Quarter: 2009Q3

REPORT INFORMATION
  Report Type: 
  Country: None (occurrence: None)
  Receive Date: 20090924
  Receipt Date: 20090313
  Transmission Date: 20100115
  Serious: Yes (Hospitalization)
  Sender: FDA-Public Use
  Company Number: US-ASTRAZENECA-2008UW25014

PATIENT
  Age: 19 Year
  Sex: Female
  Weight: 102.5 kg

DRUGS (10)
  1. SEROQUEL [Suspect]
     Indication: BIPOLAR DISORDER
     Dosage: 150 TO 300 MG
     Route: 048
     Dates: start: 20010301, end: 20020101
  2. SEROQUEL [Suspect]
     Dosage: 100 TO 150MG
     Route: 048
     Dates: start: 20020201, end: 20050401
  3. GEODON [Concomitant]
  4. RISPERDAL [Concomitant]
  5. ZYPREXA [Concomitant]
  6. CLONAZEPAM [Concomitant]
     Dosage: 0.5 TO 1 MG
     Dates: start: 20050101
  7. LITHIUM [Concomitant]
     Dates: start: 20050101
  8. ALPRAZOLAM [Concomitant]
     Dates: start: 20050101
  9. LISINOPRIL [Concomitant]
  10. GEMFIBROZIL [Concomitant]

REACTIONS (8)
  - ANXIETY [None]
  - BLOOD CHOLESTEROL INCREASED [None]
  - BLOOD TRIGLYCERIDES INCREASED [None]
  - DIABETIC KETOACIDOSIS [None]
  - OBESITY [None]
  - PANCREATITIS [None]
  - TYPE 2 DIABETES MELLITUS [None]
  - WEIGHT INCREASED [None]
